FAERS Safety Report 6677222-2 (Version None)
Quarter: 2010Q2

REPORT INFORMATION
  Report Type: 
  Country: None (occurrence: None)
  Receive Date: 20100408
  Receipt Date: 20100408
  Transmission Date: 20101027
  Serious: Yes (Disabling)
  Sender: FDA-Public Use
  Company Number: None

PATIENT
  Age: 45 Year
  Sex: Female
  Weight: 108.8633 kg

DRUGS (4)
  1. ZOLOFT [Suspect]
     Indication: DEPRESSION
     Dosage: ONCE A DAY
     Dates: start: 20091201
  2. ZOLOFT [Suspect]
     Indication: POST-TRAUMATIC STRESS DISORDER
     Dosage: ONCE A DAY
     Dates: start: 20091201
  3. ZOLOFT [Suspect]
     Indication: DEPRESSION
     Dosage: ONCE A DAY
     Dates: start: 20100301
  4. ZOLOFT [Suspect]
     Indication: POST-TRAUMATIC STRESS DISORDER
     Dosage: ONCE A DAY
     Dates: start: 20100301

REACTIONS (2)
  - AGEUSIA [None]
  - PAIN IN EXTREMITY [None]
